FAERS Safety Report 6536854-2 (Version None)
Quarter: 2010Q1

REPORT INFORMATION
  Report Type: 
  Country: None (occurrence: None)
  Receive Date: 20100107
  Receipt Date: 20091223
  Transmission Date: 20100710
  Serious: Yes (Death)
  Sender: FDA-Public Use
  Company Number: AE 2009-172

PATIENT
  Age: 47 Year
  Sex: Male

DRUGS (11)
  1. FAZACLO ODT [Suspect]
     Dosage: 150 MG DAILY PO
     Route: 048
     Dates: start: 20090302, end: 20091023
  2. SIMVASTATIN [Concomitant]
  3. CYTOMEL [Concomitant]
  4. ZONISAMIDE [Concomitant]
  5. VALPROIC ACID [Concomitant]
  6. ZOLOFT [Concomitant]
  7. INVEGA [Concomitant]
  8. VITAMIN C [Concomitant]
  9. IRON TABLET [Concomitant]
  10. PEPCID [Concomitant]
  11. MAGNESIUM OXIDE [Concomitant]

REACTIONS (1)
  - DEATH [None]
